FAERS Safety Report 5329068-5 (Version None)
Quarter: 2007Q2

REPORT INFORMATION
  Report Type: 
  Country: None (occurrence: None)
  Receive Date: 20070518
  Receipt Date: 20070508
  Transmission Date: 20071010
  Serious: Yes (Other)
  Sender: FDA-Public Use
  Company Number: US-PFIZER INC-2006124690

PATIENT
  Sex: Female

DRUGS (3)
  1. CELEBREX [Suspect]
     Dosage: DAILY DOSE:200MG
  2. VIOXX [Suspect]
  3. PAXIL [Concomitant]

REACTIONS (2)
  - CARDIOVASCULAR DISORDER [None]
  - DEPRESSION [None]
